FAERS Safety Report 17962543 (Version 1)
Quarter: 2020Q2

REPORT INFORMATION
  Report Type: Spontaneous
  Country: US (occurrence: US)
  Receive Date: 20200630
  Receipt Date: 20200630
  Transmission Date: 20200714
  Serious: Yes (Other)
  Sender: FDA-Public Use
  Company Number: US-TEVA-2019-US-1135208

PATIENT
  Age: 71 Year
  Sex: Female

DRUGS (2)
  1. ENOXAPARIN [Suspect]
     Active Substance: ENOXAPARIN
     Indication: PULMONARY EMBOLISM
     Route: 065
  2. CEFTRIAXONE. [Concomitant]
     Active Substance: CEFTRIAXONE
     Indication: PNEUMONIA
     Route: 065

REACTIONS (1)
  - Haemorrhage [Unknown]
